FAERS Safety Report 4423554-8 (Version None)
Quarter: 2004Q3

REPORT INFORMATION
  Report Type: 
  Country: None (occurrence: None)
  Receive Date: 20040805
  Receipt Date: 20040723
  Transmission Date: 20050211
  Serious: Yes (Hospitalization)
  Sender: FDA-Public Use
  Company Number: CA-JNJFOC-20040105685

PATIENT
  Age: 46 Year
  Sex: Female

DRUGS (25)
  1. REMICADE [Suspect]
     Indication: RHEUMATOID ARTHRITIS
     Dosage: SEE IMAGE
     Route: 042
     Dates: start: 20010426
  2. REMICADE [Suspect]
     Indication: RHEUMATOID ARTHRITIS
     Dosage: SEE IMAGE
     Route: 042
     Dates: start: 20011206
  3. REMICADE [Suspect]
     Indication: RHEUMATOID ARTHRITIS
     Dosage: SEE IMAGE
     Route: 042
     Dates: start: 20030129
  4. REMICADE [Suspect]
     Indication: RHEUMATOID ARTHRITIS
     Dosage: SEE IMAGE
     Route: 042
     Dates: start: 20031023
  5. REMICADE [Suspect]
     Indication: RHEUMATOID ARTHRITIS
     Dosage: SEE IMAGE
     Route: 042
     Dates: start: 20031108
  6. REMICADE [Suspect]
     Indication: RHEUMATOID ARTHRITIS
     Dosage: SEE IMAGE
     Route: 042
     Dates: start: 20031202
  7. REMICADE [Suspect]
     Indication: RHEUMATOID ARTHRITIS
     Dosage: SEE IMAGE
     Route: 042
     Dates: start: 20040211
  8. ALPHAGAN [Concomitant]
  9. K-DUR 10 [Concomitant]
  10. LASIX [Concomitant]
  11. CELLCEPT [Concomitant]
  12. VIOXX [Concomitant]
  13. PREDNISONE [Concomitant]
  14. COZAAR [Concomitant]
  15. DIDROCAL (DIDRONEL PMO ^NORWICH EATON^) [Concomitant]
  16. LANOXIN [Concomitant]
  17. ACULAR [Concomitant]
  18. COSOPT (COSPOT) [Concomitant]
  19. FLAREX (FLUOROMETHOLONE ACETATE) [Concomitant]
  20. LOSEC (OMEPRAZOLE) [Concomitant]
  21. VITAMIN D [Concomitant]
  22. COLACE (DOCUATE SODIUM) [Concomitant]
  23. SENNA (SENNA) [Concomitant]
  24. TYLENOL [Concomitant]
  25. ATIVAN [Concomitant]

REACTIONS (7)
  - CELLULITIS [None]
  - HYPOAESTHESIA [None]
  - MYELOPATHY [None]
  - SPINAL CORD COMPRESSION [None]
  - SUBCUTANEOUS ABSCESS [None]
  - UVEITIS [None]
  - WOUND SECRETION [None]
